FAERS Safety Report 9313776 (Version 2)
Quarter: 2013Q2

REPORT INFORMATION
  Report Type: Spontaneous
  Country: US (occurrence: US)
  Receive Date: 20130529
  Receipt Date: 20130617
  Transmission Date: 20140414
  Serious: No
  Sender: FDA-Public Use
  Company Number: US-BIOGENIDEC-2013BI047006

PATIENT
  Age: 58 Year
  Sex: Female

DRUGS (2)
  1. AVONEX [Suspect]
     Indication: MULTIPLE SCLEROSIS
     Route: 030
     Dates: start: 20130506
  2. MORPHINE [Concomitant]
     Indication: PAIN
     Route: 048
     Dates: start: 2009

REACTIONS (7)
  - Amnesia [Unknown]
  - Somnolence [Recovered/Resolved]
  - Tooth disorder [Not Recovered/Not Resolved]
  - Fatigue [Recovered/Resolved]
  - Feeling hot [Recovered/Resolved]
  - Hyperthyroidism [Unknown]
  - Muscular weakness [Not Recovered/Not Resolved]
